FAERS Safety Report 9178896 (Version 1)
Quarter: 2013Q1

REPORT INFORMATION
  Report Type: Spontaneous
  Country: US (occurrence: US)
  Receive Date: 20130321
  Receipt Date: 20130321
  Transmission Date: 20140127
  Serious: Yes (Hospitalization, Other)
  Sender: FDA-Public Use
  Company Number: US-WATSON-2013-03951

PATIENT
  Age: 35 Year
  Sex: Female

DRUGS (1)
  1. DOBUTAMINE HYDROCHLORIDE [Suspect]
     Indication: STRESS ECHOCARDIOGRAM
     Dosage: UNK, SINGLE
     Route: 065

REACTIONS (5)
  - Post procedural stroke [Recovered/Resolved]
  - Embolism [None]
  - Cardiac valve replacement complication [None]
  - Cerebral infarction [None]
  - Cerebral microhaemorrhage [None]
